FAERS Safety Report 7519451-1 (Version None)
Quarter: 2011Q2

REPORT INFORMATION
  Report Type: 
  Country: None (occurrence: None)
  Receive Date: 20110602
  Receipt Date: 20110526
  Transmission Date: 20111010
  Serious: Yes (Other)
  Sender: FDA-Public Use
  Company Number: FR-ROXANE LABORATORIES, INC.-2011-RO-00740RO

PATIENT
  Age: 26 Year
  Sex: Female

DRUGS (3)
  1. FOLIC ACID [Suspect]
     Indication: PSORIATIC ARTHROPATHY
     Dates: start: 20090701
  2. METHOTREXATE [Suspect]
     Indication: PSORIATIC ARTHROPATHY
     Route: 048
     Dates: start: 20090701
  3. METHOTREXATE [Suspect]
     Route: 051

REACTIONS (4)
  - DIARRHOEA [None]
  - HICCUPS [None]
  - DRUG INEFFECTIVE [None]
  - ABDOMINAL PAIN [None]
